FAERS Safety Report 19047299 (Version 6)
Quarter: 2022Q2

REPORT INFORMATION
  Report Type: Report from Study
  Country: GB (occurrence: GB)
  Receive Date: 20210323
  Receipt Date: 20220630
  Transmission Date: 20220721
  Serious: Yes (Hospitalization, Other)
  Sender: FDA-Public Use
  Company Number: None

PATIENT
  Age: 43 Year
  Sex: Female

DRUGS (14)
  1. IMODIUM [Suspect]
     Active Substance: LOPERAMIDE HYDROCHLORIDE
     Indication: Diarrhoea
     Dosage: AS NEEDED
     Route: 048
  2. DOCETAXEL [Suspect]
     Active Substance: DOCETAXEL
     Indication: Breast cancer metastatic
     Dosage: 130 MG, EVERY 3 WEEKS
     Route: 042
     Dates: start: 20150616, end: 20150709
  3. BENZYDAMINE [Suspect]
     Active Substance: BENZYDAMINE
     Indication: Mucosal inflammation
     Dosage: LIQUID MOUTHWASH 15 ML/CM3
     Route: 048
  4. HERCEPTIN [Suspect]
     Active Substance: TRASTUZUMAB
     Indication: Breast cancer metastatic
     Dosage: LOADING DOSE. RECEIVED MAINTAINANCE DOSE 420 MG ON 09-JUL-2015 (SINGLE)
     Route: 042
     Dates: start: 20150616, end: 20150616
  5. PACLITAXEL [Suspect]
     Active Substance: PACLITAXEL
     Indication: Breast cancer metastatic
     Dosage: LOADING DOSE450 MG FROM 30-JUL-2015 TO 20-AUG-2015CUMULATIVE:857.1429 MG
     Route: 042
     Dates: start: 20150919, end: 20151022
  6. PERTUZUMAB [Suspect]
     Active Substance: PERTUZUMAB
     Indication: Breast cancer metastatic
     Dosage: MAINTAINACE DOSE; 420 MG Q3W
     Route: 042
     Dates: start: 20150709
  7. TRASTUZUMAB [Suspect]
     Active Substance: TRASTUZUMAB
     Indication: Breast cancer metastatic
     Dosage: 567 MG (LOADING DOSE)
     Route: 042
     Dates: start: 20150616, end: 20150616
  8. CHLORPHENIRAMINE MALEATE [Concomitant]
     Active Substance: CHLORPHENIRAMINE MALEATE
     Indication: Product used for unknown indication
     Route: 042
     Dates: start: 20150709, end: 20150709
  9. COCODAMOL [Concomitant]
     Active Substance: ACETAMINOPHEN\CODEINE PHOSPHATE
     Indication: Product used for unknown indication
     Dosage: 500 MG, QD
     Route: 048
  10. AMOXICILLIN\CLAVULANATE POTASSIUM [Concomitant]
     Active Substance: AMOXICILLIN\CLAVULANATE POTASSIUM
     Indication: Cough
     Dosage: COUGH WITH YELLOW SPUTUM
     Dates: start: 20180110, end: 20180117
  11. DOMPERIDONE [Concomitant]
     Active Substance: DOMPERIDONE
     Indication: Product used for unknown indication
     Dosage: 10 MG, QD
     Route: 048
     Dates: start: 20150709
  12. HYDROCORTISONE [Concomitant]
     Active Substance: HYDROCORTISONE
     Indication: Product used for unknown indication
     Route: 042
     Dates: start: 20150709, end: 20150709
  13. METFORMIN [Concomitant]
     Active Substance: METFORMIN HYDROCHLORIDE
     Indication: Diabetes mellitus
     Dosage: 1 G, QD
     Route: 048
  14. TRAMADOL [Concomitant]
     Active Substance: TRAMADOL
     Indication: Pain
     Dosage: 50 MG, QD
     Route: 048

REACTIONS (7)
  - Febrile neutropenia [Recovered/Resolved]
  - Diarrhoea [Recovered/Resolved]
  - Chest pain [Recovered/Resolved]
  - Mucosal inflammation [Recovered/Resolved]
  - Swelling [Not Recovered/Not Resolved]
  - Neuropathy peripheral [Recovered/Resolved]
  - Fatigue [Recovered/Resolved]

NARRATIVE: CASE EVENT DATE: 20150908
